FAERS Safety Report 7755016-4 (Version None)
Quarter: 2011Q3

REPORT INFORMATION
  Report Type: 
  Country: None (occurrence: None)
  Receive Date: 20110916
  Receipt Date: 20110903
  Transmission Date: 20111222
  Serious: Yes (Hospitalization, Disabling, Other)
  Sender: FDA-Public Use
  Company Number: SE-PAR PHARMACEUTICAL, INC-2011SCPR003222

PATIENT

DRUGS (4)
  1. CIPROFLOXACIN [Suspect]
     Indication: APPENDICEAL ABSCESS
     Dosage: 500 MG, TWICE A DAY
     Route: 065
  2. METRONIDAZOLE [Suspect]
     Dosage: 400 MG, TID
     Route: 048
  3. CEFOTAXIME [Concomitant]
     Indication: APPENDICEAL ABSCESS
     Dosage: 1 G, THREE TIMES A DAY
     Dates: start: 20100501
  4. METRONIDAZOLE [Suspect]
     Indication: APPENDICEAL ABSCESS
     Dosage: 1 G, DAILY
     Route: 065
     Dates: start: 20100501

REACTIONS (2)
  - TOXIC ENCEPHALOPATHY [None]
  - HEARING IMPAIRED [None]
